FAERS Safety Report 24105910 (Version 8)
Quarter: 2025Q4

REPORT INFORMATION
  Report Type: Spontaneous
  Country: US (occurrence: US)
  Receive Date: 20240717
  Receipt Date: 20251023
  Transmission Date: 20260117
  Serious: No
  Sender: SANOFI AVENTIS
  Company Number: US-SA-SAC20240716000523

PATIENT
  Age: 58 Year
  Sex: Female

DRUGS (24)
  1. DUPIXENT [Suspect]
     Active Substance: DUPILUMAB
     Indication: Nasal polyps
     Dosage: 300 MG QOW
     Route: 058
     Dates: start: 202402, end: 202404
  2. DUPIXENT [Suspect]
     Active Substance: DUPILUMAB
     Dosage: 300 MG QOW
     Route: 058
     Dates: start: 202406
  3. NITROFURANTOIN MONOHYDRATE MACROCRYSTALS [Concomitant]
     Active Substance: NITROFURANTOIN\NITROFURANTOIN MONOHYDRATE
     Dosage: UNK
     Dates: start: 20240702
  4. SPIRIVA [Concomitant]
     Active Substance: TIOTROPIUM BROMIDE MONOHYDRATE
     Dosage: 1 DF, QD
     Route: 048
     Dates: start: 20240506
  5. ATORVASTATIN [Concomitant]
     Active Substance: ATORVASTATIN
     Dosage: 1 DF, QD
     Route: 048
     Dates: start: 20250731
  6. BUSPIRONE [Concomitant]
     Active Substance: BUSPIRONE HYDROCHLORIDE
     Dosage: 2 DF, QD
     Route: 048
     Dates: start: 20250731
  7. CETIRIZINE [Concomitant]
     Active Substance: CETIRIZINE HYDROCHLORIDE
     Dosage: 1 DF, QD
     Route: 048
     Dates: start: 20250703
  8. CLOBETASOL [Concomitant]
     Active Substance: CLOBETASOL
     Indication: Condition aggravated
     Dosage: UNK UNK, BID
     Route: 061
     Dates: start: 20250731
  9. CLONAZEPAM [Concomitant]
     Active Substance: CLONAZEPAM
     Indication: Panic attack
     Dosage: UNK UNK, BID
     Dates: start: 20250808
  10. CLONAZEPAM [Concomitant]
     Active Substance: CLONAZEPAM
     Indication: Anxiety
  11. FLUTICASONE PROPIONATE [Concomitant]
     Active Substance: FLUTICASONE PROPIONATE
     Dosage: TO SHAKE LIQUID AND USE TWO SPRAYS IN EACH NOSTRIL ONCE DAILY
     Route: 045
     Dates: start: 20250731
  12. GABAPENTIN [Concomitant]
     Active Substance: GABAPENTIN
     Dosage: 1 DF, BID
     Route: 048
     Dates: start: 20250731
  13. ACETAMINOPHEN\HYDROCODONE [Concomitant]
     Active Substance: ACETAMINOPHEN\HYDROCODONE
     Dosage: 1 DF, TID
     Route: 048
     Dates: start: 20250815
  14. KETOCONAZOLE [Concomitant]
     Active Substance: KETOCONAZOLE
     Dosage: ONE APPLICATION TOPICALLY THREE TIMES A WEEK, LET SIT FOR 10 MINUTES ON SCALP, THEN RINSE
     Route: 061
     Dates: start: 20250731
  15. LEVOTHYROXINE [Concomitant]
     Active Substance: LEVOTHYROXINE
     Dosage: ONE TABLET BY MOUTH EVERY DAY IN THE MORNING ON AN EMPTY STOMACH
     Route: 048
  16. LUMIGAN [Concomitant]
     Active Substance: BIMATOPROST
     Dosage: INSTILL ONE DROP IN EACH EYE AT BEDTIME
     Route: 047
     Dates: start: 20250731
  17. MEDROL [Concomitant]
     Active Substance: METHYLPREDNISOLONE
     Dosage: PATIENT WAS INSTRUCTED TO TAKE AS DIRECTED ON THE BOX
     Dates: start: 20250821
  18. METOPROLOL TARTRATE [Concomitant]
     Active Substance: METOPROLOL TARTRATE
     Dosage: TAKE ONE TABLET BY MOUTH TWICE DAILY WITH FOOD
     Route: 048
     Dates: start: 20250805
  19. OLANZAPINE [Concomitant]
     Active Substance: OLANZAPINE
     Dosage: 1 DF, QD
     Route: 048
     Dates: start: 20250731
  20. ORENCIA [Concomitant]
     Active Substance: ABATACEPT
     Dosage: ONE SYRINGE UNDER THE SKIN ONCE WEEKLY
     Route: 058
     Dates: start: 20250806
  21. PREDNISONE [Concomitant]
     Active Substance: PREDNISONE
     Indication: Pain
     Dosage: 1 DF, QD
     Route: 048
     Dates: start: 20250804
  22. RETIN-A [Concomitant]
     Active Substance: TRETINOIN
     Dosage: PEA SIZED AMOUNT TO ENTIRE FACE 2-3 NIGHTS WEEKLY, AND COULD INCREASE AS TOLERATED
     Dates: start: 20250731
  23. TRULICITY [Concomitant]
     Active Substance: DULAGLUTIDE
     Dosage: 4.5 MG, QW
     Route: 058
     Dates: start: 20250731
  24. VENLAFAXINE [Concomitant]
     Active Substance: VENLAFAXINE HYDROCHLORIDE
     Dosage: ONE CAPSULE BY MOUTH ONCE DAILY WITH FOOD
     Route: 048
     Dates: start: 20250731

REACTIONS (19)
  - Nasal congestion [Recovering/Resolving]
  - Condition aggravated [Recovering/Resolving]
  - Nasal obstruction [Not Recovered/Not Resolved]
  - Condition aggravated [Not Recovered/Not Resolved]
  - Anosmia [Recovering/Resolving]
  - Condition aggravated [Recovering/Resolving]
  - Rhinorrhoea [Not Recovered/Not Resolved]
  - Skin lesion [Recovering/Resolving]
  - Post procedural inflammation [Recovering/Resolving]
  - Condition aggravated [Not Recovered/Not Resolved]
  - Pain [Recovering/Resolving]
  - Nasal septum deviation [Unknown]
  - Urinary tract infection [Recovered/Resolved]
  - Nasal turbinate hypertrophy [Unknown]
  - Nasal oedema [Recovering/Resolving]
  - Rhinorrhoea [Not Recovered/Not Resolved]
  - Nasopharyngitis [Not Recovered/Not Resolved]
  - Vision blurred [Recovering/Resolving]
  - Eye irritation [Recovering/Resolving]

NARRATIVE: CASE EVENT DATE: 20240101
